FAERS Safety Report 6169919-8 (Version None)
Quarter: 2009Q2

REPORT INFORMATION
  Report Type: 
  Country: None (occurrence: None)
  Receive Date: 20090428
  Receipt Date: 20080626
  Transmission Date: 20091009
  Serious: No
  Sender: FDA-Public Use
  Company Number: A0735636A

PATIENT

DRUGS (1)
  1. SEREVENT [Suspect]
     Indication: DRUG USE FOR UNKNOWN INDICATION
     Route: 065
     Dates: start: 20080501

REACTIONS (1)
  - APHONIA [None]
